FAERS Safety Report 19421670 (Version 1)
Quarter: 2021Q2

REPORT INFORMATION
  Report Type: Spontaneous
  Country: US (occurrence: US)
  Receive Date: 20210615
  Receipt Date: 20210615
  Transmission Date: 20210717
  Serious: Yes (Hospitalization)
  Sender: FDA-Public Use
  Company Number: US-VALIDUS PHARMACEUTICALS LLC-US-2021VAL001253

PATIENT

DRUGS (4)
  1. PETHIDINE HYDROCHLORIDE [Suspect]
     Active Substance: MEPERIDINE HYDROCHLORIDE
     Indication: PORPHYRIA ACUTE
     Dosage: UNK
     Route: 065
  2. CHLORPROMAZINE. [Suspect]
     Active Substance: CHLORPROMAZINE
     Indication: PORPHYRIA ACUTE
     Dosage: UNK
     Route: 065
  3. PROPRANOLOL HYDROCHLORIDE. [Suspect]
     Active Substance: PROPRANOLOL HYDROCHLORIDE
     Indication: PORPHYRIA ACUTE
     Dosage: UNK
     Route: 065
  4. HEMATIN [Suspect]
     Active Substance: HEMATIN
     Indication: PORPHYRIA ACUTE
     Dosage: 196 MG, Q12H
     Route: 042

REACTIONS (3)
  - Drug interaction [Recovered/Resolved]
  - Coagulopathy [Recovered/Resolved]
  - Drug ineffective [Unknown]
